FAERS Safety Report 14321153 (Version 2)
Quarter: 2017Q4

REPORT INFORMATION
  Report Type: Spontaneous
  Country: CO (occurrence: CO)
  Receive Date: 20171223
  Receipt Date: 20171229
  Transmission Date: 20180321
  Serious: Yes (Life-Threatening, Hospitalization, Other)
  Sender: FDA-Public Use
  Company Number: CO-B.I. PHARMACEUTICALS,INC./RIDGEFIELD-2017-BI-068266

PATIENT
  Sex: Male

DRUGS (2)
  1. PRAXBIND [Suspect]
     Active Substance: IDARUCIZUMAB
     Indication: PROCOAGULANT THERAPY
     Route: 042
     Dates: start: 20171130, end: 20171130
  2. PRAXBIND [Suspect]
     Active Substance: IDARUCIZUMAB
     Indication: HEART TRANSPLANT

REACTIONS (2)
  - Pericardial haemorrhage [Recovered/Resolved]
  - Drug administration error [Recovered/Resolved]
